FAERS Safety Report 8575562-3 (Version None)
Quarter: 2012Q2

REPORT INFORMATION
  Report Type: 
  Country: None (occurrence: None)
  Receive Date: 20120423
  Receipt Date: 20091216
  Transmission Date: 20120825
  Serious: Yes (Other)
  Sender: FDA-Public Use
  Company Number: PHEH2007US16339

PATIENT
  Age: 38 Year
  Sex: Female
  Weight: 93 kg

DRUGS (2)
  1. EXJADE [Suspect]
     Indication: RENAL IMPAIRMENT
     Dosage: 1500 MG, QD, ORAL
     Route: 048
     Dates: start: 20061101, end: 20070501
  2. EXJADE [Suspect]
     Indication: BLOOD IRON INCREASED
     Dosage: 1500 MG, QD, ORAL
     Route: 048
     Dates: start: 20061101, end: 20070501

REACTIONS (1)
  - RENAL IMPAIRMENT [None]
